FAERS Safety Report 26179321 (Version 1)
Quarter: 2025Q4

REPORT INFORMATION
  Report Type: Spontaneous
  Country: US (occurrence: None)
  Receive Date: 20251219
  Receipt Date: 20251219
  Transmission Date: 20260117
  Serious: Yes (Hospitalization)
  Sender: FDA-CTU
  Company Number: None

PATIENT
  Age: 3 Month
  Sex: Female
  Weight: 5.4 kg

DRUGS (1)
  1. METHYLPREDNISOLONE [Suspect]
     Active Substance: METHYLPREDNISOLONE
     Dates: end: 20251217

REACTIONS (8)
  - Hyperleukocytosis [None]
  - Peripheral artery thrombosis [None]
  - Peripheral artery thrombosis [None]
  - Peripheral artery thrombosis [None]
  - Coagulopathy [None]
  - Peripheral ischaemia [None]
  - Necrosis [None]
  - Leg amputation [None]

NARRATIVE: CASE EVENT DATE: 20251213
